FAERS Safety Report 8067103-4 (Version None)
Quarter: 2012Q1

REPORT INFORMATION
  Report Type: 
  Country: None (occurrence: None)
  Receive Date: 20120124
  Receipt Date: 20120109
  Transmission Date: 20120608
  Serious: Yes (Hospitalization)
  Sender: FDA-Public Use
  Company Number: US-WATSON-2012-00863

PATIENT
  Age: 80 Year
  Sex: Male

DRUGS (1)
  1. ALLOPURINOL [Suspect]
     Indication: GOUT
     Dosage: 300 MG, DAILY
     Route: 065

REACTIONS (2)
  - HEPATOTOXICITY [None]
  - SMOOTH MUSCLE ANTIBODY POSITIVE [None]
